FAERS Safety Report 8700046 (Version 4)
Quarter: 2014Q1

REPORT INFORMATION
  Report Type: Spontaneous
  Country: US (occurrence: US)
  Receive Date: 20120802
  Receipt Date: 20140116
  Transmission Date: 20141002
  Serious: No
  Sender: FDA-Public Use
  Company Number: US-ASTRAZENECA-2012SE44390

PATIENT
  Age: 84 Year
  Sex: Female
  Weight: 55.8 kg

DRUGS (10)
  1. SYMBICORT [Suspect]
     Indication: ASTHMA
     Dosage: 80 MCG/4.5 MCG 2 PUFFS BID
     Route: 055
  2. SYMBICORT [Suspect]
     Indication: CHRONIC OBSTRUCTIVE PULMONARY DISEASE
     Dosage: 80 MCG/4.5 MCG 2 PUFFS BID
     Route: 055
  3. PREDNISONE [Suspect]
     Indication: PERIPHERAL COLDNESS
     Route: 048
  4. PREDNISONE [Suspect]
     Indication: DYSPNOEA
     Route: 048
  5. VICODIN [Suspect]
     Route: 065
  6. VENTOLIN [Concomitant]
     Indication: PROPHYLAXIS AGAINST BRONCHOSPASM
     Dosage: AS REQUIRED
  7. VENTOLIN [Concomitant]
     Indication: PROPHYLAXIS AGAINST BRONCHOSPASM
     Dosage: 4 TIMES DAILY
  8. VENTOLIN [Concomitant]
     Indication: PROPHYLAXIS AGAINST BRONCHOSPASM
     Dosage: REDUCED
  9. OTHER MEDICATIONS NOT SPECIFIED [Concomitant]
  10. 2L OXYGEN [Concomitant]

REACTIONS (11)
  - Dyspnoea [Unknown]
  - Dyspnoea [Recovering/Resolving]
  - Back disorder [Unknown]
  - Spinal column stenosis [Unknown]
  - Back pain [Unknown]
  - Chest pain [Unknown]
  - Chest discomfort [Unknown]
  - Swelling face [Unknown]
  - Heart rate increased [Recovering/Resolving]
  - Dysphonia [Recovered/Resolved]
  - Blood pressure increased [Recovered/Resolved]
